FAERS Safety Report 23292896 (Version 4)
Quarter: 2024Q1

REPORT INFORMATION
  Report Type: Spontaneous
  Country: DE (occurrence: DE)
  Receive Date: 20231213
  Receipt Date: 20240219
  Transmission Date: 20240410
  Serious: Yes (Disabling, Other)
  Sender: FDA-Public Use
  Company Number: DE-BAXTER-2020BAX019129

PATIENT
  Age: 33 Year
  Sex: Male
  Weight: 83 kg

DRUGS (20)
  1. AMIKACIN SULFATE [Suspect]
     Active Substance: AMIKACIN SULFATE
     Indication: Product used for unknown indication
     Dosage: UNK
     Route: 065
  2. DEXAMETHASONE [Suspect]
     Active Substance: DEXAMETHASONE
     Dosage: 8 MG TOTAL
     Route: 065
     Dates: start: 20190819
  3. DEXAMETHASONE [Suspect]
     Active Substance: DEXAMETHASONE
     Indication: Product used for unknown indication
     Dosage: UNK
     Route: 065
     Dates: start: 20190819
  4. DICLOFENAC [Suspect]
     Active Substance: DICLOFENAC
     Indication: Surgery
     Dosage: UNK
     Route: 065
     Dates: start: 20190819
  5. DICLOFENAC [Suspect]
     Active Substance: DICLOFENAC
     Indication: Surgery
     Dosage: UNK
     Route: 065
     Dates: start: 20190818, end: 20190902
  6. DICLOFENAC [Suspect]
     Active Substance: DICLOFENAC
     Indication: Pain
  7. FENTANYL [Suspect]
     Active Substance: FENTANYL\FENTANYL CITRATE
     Indication: Product used for unknown indication
     Dosage: UNK
     Route: 065
     Dates: start: 20190819
  8. FENTANYL CITRATE [Suspect]
     Active Substance: FENTANYL CITRATE
     Indication: Surgery
     Dosage: 0.2 MILLIGRAM
     Route: 065
  9. FENTANYL CITRATE [Suspect]
     Active Substance: FENTANYL CITRATE
     Indication: Dyspnoea
  10. HALDOL DECANOATE [Suspect]
     Active Substance: HALOPERIDOL DECANOATE
     Indication: Surgery
     Dosage: UNK
     Route: 065
  11. MIVACURIUM [Suspect]
     Active Substance: MIVACURIUM
     Indication: Surgery
     Dosage: 14  MILLIGRAM
     Route: 065
     Dates: start: 20190819
  12. MIVACURIUM [Suspect]
     Active Substance: MIVACURIUM
     Dosage: UNK
     Route: 065
     Dates: start: 20190819
  13. NOVAMINE [Suspect]
     Active Substance: ALANINE\ARGININE\ASPARTIC ACID\GLUTAMIC ACID\GLYCINE\HISTIDINE\ISOLEUCINE\LEUCINE\LYSINE ACETATE\MET
     Indication: Product used for unknown indication
     Dosage: UNK
     Route: 065
     Dates: start: 20190819
  14. ONDANSETRON [Suspect]
     Active Substance: ONDANSETRON
     Indication: Surgery
     Dosage: 4 MG
     Route: 065
     Dates: start: 20190819
  15. PIRITRAMIDE [Suspect]
     Active Substance: PIRITRAMIDE
     Indication: Surgery
     Dosage: 7.5 MG
     Route: 065
  16. PROPOFOL [Suspect]
     Active Substance: PROPOFOL
     Indication: Product used for unknown indication
     Dosage: UNK
     Route: 065
     Dates: start: 20190819
  17. PROPOFOL [Suspect]
     Active Substance: PROPOFOL
     Indication: Tonsillectomy
     Dosage: 300 MG
     Route: 065
     Dates: start: 20190819
  18. PROPOFOL [Suspect]
     Active Substance: PROPOFOL
     Indication: Anaesthesia
     Dosage: UNK
     Route: 065
     Dates: start: 20190820, end: 20190820
  19. SEVOFLURANE [Suspect]
     Active Substance: SEVOFLURANE
     Indication: Surgery
     Dosage: 2.3 %
     Route: 065
     Dates: start: 20190819, end: 20190819
  20. METAMIZOLE [Concomitant]
     Active Substance: METAMIZOLE
     Indication: Surgery
     Dosage: 2500 MG
     Route: 065

REACTIONS (28)
  - Hyperventilation [Not Recovered/Not Resolved]
  - Dyspnoea [Not Recovered/Not Resolved]
  - Cardiovascular disorder [Not Recovered/Not Resolved]
  - Visual impairment [Not Recovered/Not Resolved]
  - Speech disorder [Not Recovered/Not Resolved]
  - Performance status decreased [Not Recovered/Not Resolved]
  - Blood pressure measurement [Not Recovered/Not Resolved]
  - Chest discomfort [Not Recovered/Not Resolved]
  - Vision blurred [Not Recovered/Not Resolved]
  - Oropharyngeal discomfort [Not Recovered/Not Resolved]
  - Flatulence [Not Recovered/Not Resolved]
  - Asthenia [Not Recovered/Not Resolved]
  - Heart rate increased [Not Recovered/Not Resolved]
  - Dizziness [Not Recovered/Not Resolved]
  - General physical health deterioration [Not Recovered/Not Resolved]
  - Weight bearing difficulty [Not Recovered/Not Resolved]
  - Oropharyngeal pain [Not Recovered/Not Resolved]
  - Chest pain [Not Recovered/Not Resolved]
  - Somnolence [Not Recovered/Not Resolved]
  - Impaired work ability [Not Recovered/Not Resolved]
  - General physical condition abnormal [Unknown]
  - Tachycardia [Unknown]
  - Malaise [Unknown]
  - Asthenia [Unknown]
  - Chest discomfort [Unknown]
  - Product use in unapproved indication [Unknown]
  - Nausea [Unknown]
  - Off label use [Unknown]

NARRATIVE: CASE EVENT DATE: 20190818
